FAERS Safety Report 8407154-0 (Version None)
Quarter: 2012Q2

REPORT INFORMATION
  Report Type: 
  Country: None (occurrence: None)
  Receive Date: 20120604
  Receipt Date: 20120529
  Transmission Date: 20120825
  Serious: Yes (Other)
  Sender: FDA-Public Use
  Company Number: US-BAYER-2012-045060

PATIENT
  Age: 59 Year
  Sex: Female

DRUGS (2)
  1. NEXAVAR [Suspect]
     Indication: HEPATIC NEOPLASM MALIGNANT
     Dosage: 400 MG, BID
     Route: 048
     Dates: start: 20120501
  2. CALCIUM CARBONATE [Concomitant]

REACTIONS (8)
  - ABDOMINAL PAIN UPPER [None]
  - THROMBOCYTOPENIA [None]
  - FATIGUE [None]
  - ABDOMINAL DISCOMFORT [None]
  - OCULAR ICTERUS [None]
  - WEIGHT DECREASED [None]
  - DIARRHOEA [None]
  - APHAGIA [None]
